FAERS Safety Report 12157894 (Version 1)
Quarter: 2016Q1

REPORT INFORMATION
  Report Type: Spontaneous
  Country: US (occurrence: US)
  Receive Date: 20160308
  Receipt Date: 20160308
  Transmission Date: 20160526
  Serious: No
  Sender: FDA-Public Use
  Company Number: US-JNJFOC-20141109270

PATIENT
  Age: 82 Year
  Sex: Male

DRUGS (8)
  1. LISINOPRIL. [Concomitant]
     Active Substance: LISINOPRIL
     Indication: HYPERTENSION
     Route: 048
  2. VITAMIN D3 [Concomitant]
     Active Substance: CHOLECALCIFEROL
     Route: 048
  3. IMBRUVICA [Suspect]
     Active Substance: IBRUTINIB
     Indication: MANTLE CELL LYMPHOMA
     Route: 048
     Dates: start: 20140807
  4. LISINOPRIL. [Concomitant]
     Active Substance: LISINOPRIL
     Indication: HYPERTENSION
     Route: 048
  5. IMBRUVICA [Suspect]
     Active Substance: IBRUTINIB
     Indication: MANTLE CELL LYMPHOMA
     Route: 048
     Dates: start: 20140729, end: 20140806
  6. VITAMIN C [Concomitant]
     Active Substance: ASCORBIC ACID
  7. IMBRUVICA [Suspect]
     Active Substance: IBRUTINIB
     Indication: MANTLE CELL LYMPHOMA
     Route: 048
     Dates: start: 20140718, end: 20140722
  8. TRAVATAN [Concomitant]
     Active Substance: TRAVOPROST
     Route: 047

REACTIONS (8)
  - Muscle spasms [Not Recovered/Not Resolved]
  - Thrombocytopenia [Recovered/Resolved]
  - Contusion [Not Recovered/Not Resolved]
  - Cough [Unknown]
  - Blood lactate dehydrogenase increased [Unknown]
  - Anaemia [Recovered/Resolved]
  - Amnesia [Unknown]
  - Renal failure [Not Recovered/Not Resolved]

NARRATIVE: CASE EVENT DATE: 2014
